FAERS Safety Report 9201879 (Version 2)
Quarter: 2013Q2

REPORT INFORMATION
  Report Type: Spontaneous
  Country: US (occurrence: US)
  Receive Date: 20130401
  Receipt Date: 20130409
  Transmission Date: 20140414
  Serious: Yes (Hospitalization, Other)
  Sender: FDA-Public Use
  Company Number: US-ROCHE-1208221

PATIENT
  Age: 64 Year
  Sex: Female
  Weight: 54.48 kg

DRUGS (9)
  1. ACTEMRA [Suspect]
     Indication: RHEUMATOID ARTHRITIS
     Route: 042
     Dates: start: 20130206, end: 20130327
  2. PREDNISONE [Concomitant]
     Route: 048
  3. PREDNISONE [Concomitant]
     Route: 065
     Dates: start: 20130209
  4. PREDNISONE [Concomitant]
     Route: 065
  5. ASPIRIN [Concomitant]
     Route: 048
  6. IBUPROFEN [Concomitant]
     Route: 048
  7. MAXIDEX [Concomitant]
     Route: 048
  8. LIPITOR [Concomitant]
  9. ARIMIDEX [Concomitant]

REACTIONS (9)
  - Anaphylactic reaction [Unknown]
  - Convulsion [Recovered/Resolved]
  - Headache [Recovered/Resolved]
  - Muscle twitching [Recovered/Resolved]
  - Feeling abnormal [Recovered/Resolved]
  - Blood pressure decreased [Recovered/Resolved]
  - Nausea [Recovered/Resolved]
  - Retching [Recovered/Resolved]
  - Rash [Recovered/Resolved]
